FAERS Safety Report 5080443-6 (Version None)
Quarter: 2006Q3

REPORT INFORMATION
  Report Type: 
  Country: None (occurrence: None)
  Receive Date: 20060815
  Receipt Date: 20010105
  Transmission Date: 20061208
  Serious: Yes (Hospitalization)
  Sender: FDA-Public Use
  Company Number: US-SOLVAY-00201000317

PATIENT
  Age: 22950 Day
  Sex: Male

DRUGS (4)
  1. LIPITOR [Concomitant]
     Indication: HYPERCHOLESTEROLAEMIA
     Dosage: DAILY DOSE: 10 MG.
     Route: 048
     Dates: start: 20001025
  2. ACEON [Suspect]
     Indication: HYPERTENSION
     Dosage: DAILY DOSE: 4 MG.
     Route: 048
     Dates: start: 20001116, end: 20010105
  3. ACEON [Suspect]
     Dosage: DAILY DOSE: 2 MG.
     Route: 048
     Dates: start: 20010105
  4. ASPIRIN [Concomitant]
     Indication: CAROTID ARTERY STENOSIS
     Dosage: DAILY DOSE: 325 MG.
     Route: 048
     Dates: start: 20001010

REACTIONS (5)
  - ATELECTASIS [None]
  - CARDIAC FAILURE CONGESTIVE [None]
  - HAEMOPTYSIS [None]
  - PULMONARY OEDEMA [None]
  - TRACHEOBRONCHITIS [None]
